FAERS Safety Report 10052996 (Version 1)
Quarter: 2014Q2

REPORT INFORMATION
  Report Type: Spontaneous
  Country: US (occurrence: US)
  Receive Date: 20140402
  Receipt Date: 20140402
  Transmission Date: 20141212
  Serious: No
  Sender: FDA-Public Use
  Company Number: US-009507513-1404USA000988

PATIENT
  Age: 22 Year
  Sex: Female

DRUGS (1)
  1. NUVARING [Suspect]
     Dosage: UNK, 3 WEEKS IN, 1 WEEK OUT, 1 RING
     Route: 067

REACTIONS (1)
  - Inappropriate schedule of drug administration [Unknown]
